FAERS Safety Report 6058966-2 (Version None)
Quarter: 2009Q1

REPORT INFORMATION
  Report Type: 
  Country: None (occurrence: None)
  Receive Date: 20090130
  Receipt Date: 20090123
  Transmission Date: 20090719
  Serious: Yes (Death, Hospitalization)
  Sender: FDA-Public Use
  Company Number: A0759171A

PATIENT
  Age: 79 Year
  Sex: Female
  Weight: 84.1 kg

DRUGS (8)
  1. AVANDIA [Suspect]
     Dosage: 8MG PER DAY
     Route: 048
     Dates: start: 20060901
  2. TIAZAC [Concomitant]
  3. GLUCOVANCE [Concomitant]
  4. PRINIVIL [Concomitant]
  5. IBUPROFEN TABLETS [Concomitant]
  6. CLARITIN [Concomitant]
  7. LIPITOR [Concomitant]
  8. FIBER SUPPLEMENT [Concomitant]

REACTIONS (2)
  - CARDIAC FAILURE CONGESTIVE [None]
  - DEATH [None]
